FAERS Safety Report 6573081-7 (Version None)
Quarter: 2010Q1

REPORT INFORMATION
  Report Type: 
  Country: None (occurrence: None)
  Receive Date: 20100208
  Receipt Date: 20100201
  Transmission Date: 20100710
  Serious: Yes (Death, Hospitalization)
  Sender: FDA-Public Use
  Company Number: DE-ELI_LILLY_AND_COMPANY-DE200908005918

PATIENT
  Sex: Female

DRUGS (8)
  1. PEMETREXED [Suspect]
     Indication: NON-SMALL CELL LUNG CANCER
     Dosage: 500 MG/M2, ONCE EVERY 21 DAYS
     Route: 042
     Dates: start: 20090429, end: 20090708
  2. PEMETREXED [Suspect]
     Dosage: ONCE EVERY 21 DAYS
     Route: 042
     Dates: start: 20090730, end: 20090907
  3. CISPLATIN [Suspect]
     Indication: NON-SMALL CELL LUNG CANCER
     Dosage: 75 MG/M2, DAY 1 EVERY 21 DAYS
     Route: 042
     Dates: start: 20090429, end: 20090708
  4. FOLIC ACID [Concomitant]
     Indication: PROPHYLAXIS
     Dates: start: 20090424
  5. VITAMIN B-12 [Concomitant]
     Indication: PROPHYLAXIS
     Dates: start: 20090625, end: 20090625
  6. DEXAMETHASONE [Concomitant]
     Indication: PROPHYLAXIS
     Dates: start: 20090819, end: 20090821
  7. CLEXANE [Concomitant]
     Indication: THROMBOSIS
     Dates: start: 20090301
  8. PANTOZOL [Concomitant]
     Indication: PROPHYLAXIS
     Dates: start: 20090213

REACTIONS (3)
  - CEREBELLAR INFARCTION [None]
  - ENDOCARDITIS [None]
  - NAUSEA [None]
